FAERS Safety Report 10674539 (Version 5)
Quarter: 2015Q1

REPORT INFORMATION
  Report Type: Report from Study
  Country: US (occurrence: None)
  Receive Date: 20141222
  Receipt Date: 20150203
  Transmission Date: 20150720
  Serious: Yes (Death, Life-Threatening, Hospitalization)
  Sender: FDA-Public Use
  Company Number: 2014MPI01635

PATIENT
  Age: 23 Year
  Sex: Male
  Weight: 76.5 kg

DRUGS (22)
  1. VINBLASTINE [Suspect]
     Active Substance: VINBLASTINE
     Indication: HODGKIN^S DISEASE
     Dosage: 6 MG/M2, Q2WEEKS, INTRAVENOUS
     Route: 042
     Dates: start: 20140826, end: 20141125
  2. BENADRYL /00000402/ (DIPHENHYDRAMINE HYDROCHLORIDE) [Concomitant]
  3. TRIMETHOBENZAMIDE /00077702/ (TRIMETHOBENZAMIDE HYDROCHLORIDE) CAPSULE [Concomitant]
  4. ANUSOL (BISMUTH HYDROXIDE, BISMUTH SUBGALLATE, BORIC ACID, MYROXYLON BALSAMUM VAR. PEREIRAE BALSAM, ZINC OXIDE) CREAM [Concomitant]
  5. ADVIL [Concomitant]
     Active Substance: IBUPROFEN
  6. ANUSOL /00117301/ (BISMUTH HYDROXIDE, BISMUTH SUBGALLATE, BORIC ACID, MYROXYLON BALSAMUM VAR. PEREIRAE BALSAM, ZINC OXIDE) CREAM? [Concomitant]
  7. DOXORUBICIN [Suspect]
     Active Substance: DOXORUBICIN
     Indication: HODGKIN^S DISEASE
     Dosage: 25 MG/M2, Q2WEEKS, INTRAVENOUS
     Route: 042
     Dates: start: 20140826, end: 20141125
  8. DEXAMETHASONE (DEXAMETHASONE) INJECTION [Suspect]
     Active Substance: DEXAMETHASONE
     Route: 048
     Dates: start: 20140827, end: 20141128
  9. PROCHLORPERAZINE (PROCHLORPERAZINE MALEATE) TABLET [Concomitant]
  10. BRENTUXIMAB VEDOTIN [Suspect]
     Active Substance: BRENTUXIMAB VEDOTIN
     Indication: HODGKIN^S DISEASE
     Dosage: 1.2 MG/KG, Q14D, INTRAVENOUS
     Route: 042
     Dates: start: 20140826, end: 20141125
  11. ALPRAZOLAM. [Concomitant]
     Active Substance: ALPRAZOLAM
  12. HALDOL (HALOPERIDOL) [Concomitant]
  13. CLOBETASOL (CLOBETASOL PROPIONATE) [Concomitant]
  14. PROTONIX (PANTOPRAZOLE SODIUM SESQUIHYDRATE) TABLET? [Concomitant]
  15. HALDOL [Concomitant]
     Active Substance: HALOPERIDOL
  16. DACARBAZINE (DACARBAZINE) INJECTION [Suspect]
     Active Substance: DACARBAZINE
     Indication: HODGKIN^S DISEASE
     Dosage: 375 MG/M2, Q2WEEKS
     Route: 042
     Dates: start: 20140826, end: 20141125
  17. BENADRYL [Concomitant]
     Active Substance: DIPHENHYDRAMINE HYDROCHLORIDE
  18. PROCHLORPERAZINE /00013304/ (PROCHLORPERAZINE MALEATE) TABLET [Concomitant]
  19. ACETAMINOPHEN (PARACETAMOL) [Concomitant]
     Active Substance: ACETAMINOPHEN
  20. TRIMETHOBENZAMIDE (TRIMETHOBENZAMIDE HYDROCHLORIDE) CAPSULE??? [Concomitant]
  21. CLOBETASOL /00337102/ (CLOBETASOL PROPIONATE) [Concomitant]
  22. ADVIL /00109201/ (IBUPROFEN) [Concomitant]

REACTIONS (14)
  - Haematocrit decreased [None]
  - Hodgkin^s disease [None]
  - Unresponsive to stimuli [None]
  - Blood culture positive [None]
  - Clostridium test positive [None]
  - Alanine aminotransferase increased [None]
  - Blood creatinine increased [None]
  - Neutropenia [None]
  - Aspartate aminotransferase increased [None]
  - Septic shock [None]
  - Cardio-respiratory arrest [None]
  - Blood bilirubin increased [None]
  - Haemoglobin decreased [None]
  - Troponin increased [None]

NARRATIVE: CASE EVENT DATE: 20140709
